FAERS Safety Report 6042256-8 (Version None)
Quarter: 2009Q1

REPORT INFORMATION
  Report Type: 
  Country: None (occurrence: None)
  Receive Date: 20090116
  Receipt Date: 20090115
  Transmission Date: 20090719
  Serious: Yes (Death, Life-Threatening, Hospitalization)
  Sender: FDA-Public Use
  Company Number: CA-ASTRAZENECA-2008UW19943

PATIENT
  Age: 60 Year
  Sex: Female

DRUGS (13)
  1. CRESTOR [Suspect]
     Route: 048
  2. RABEPRAZOLE SODIUM [Concomitant]
  3. ALTACE [Concomitant]
  4. METFORMIN HCL [Concomitant]
  5. DIOVAN [Concomitant]
  6. EZETROL [Concomitant]
  7. PROXETINE [Concomitant]
  8. ASPIRIN [Concomitant]
  9. METOPROLOL [Concomitant]
  10. GLYBURIDE [Concomitant]
  11. HYDROCHLOROTHIAZIDE [Concomitant]
  12. NITROGLYCERIN [Concomitant]
  13. PREVACID [Concomitant]

REACTIONS (10)
  - ALANINE AMINOTRANSFERASE INCREASED [None]
  - ASPARTATE AMINOTRANSFERASE INCREASED [None]
  - BLOOD CREATINE INCREASED [None]
  - BLOOD CREATINE PHOSPHOKINASE INCREASED [None]
  - CARDIAC ARREST [None]
  - HEPATIC FAILURE [None]
  - LIVER FUNCTION TEST ABNORMAL [None]
  - RENAL FAILURE [None]
  - RENAL FAILURE ACUTE [None]
  - RHABDOMYOLYSIS [None]
